FAERS Safety Report 11300389 (Version 1)
Quarter: 2015Q3

REPORT INFORMATION
  Report Type: Spontaneous
  Country: US (occurrence: US)
  Receive Date: 20150722
  Receipt Date: 20150722
  Transmission Date: 20151125
  Serious: No
  Sender: FDA-Public Use
  Company Number: US-ELI_LILLY_AND_COMPANY-US201310008937

PATIENT
  Age: 75 Year

DRUGS (2)
  1. ATORVASTATIN [Concomitant]
     Active Substance: ATORVASTATIN
     Indication: BLOOD CHOLESTEROL ABNORMAL
     Dosage: 10 MG, UNK
     Route: 065
  2. EVISTA [Suspect]
     Active Substance: RALOXIFENE HYDROCHLORIDE
     Indication: OSTEOPOROSIS
     Dosage: 60 MG, QD
     Route: 065

REACTIONS (8)
  - Rhinalgia [Unknown]
  - Ear pain [Unknown]
  - Dysphonia [Unknown]
  - Increased bronchial secretion [Unknown]
  - Oropharyngeal pain [Unknown]
  - Dysphagia [Unknown]
  - Pain in jaw [Unknown]
  - Cataract [Unknown]

NARRATIVE: CASE EVENT DATE: 201306
